FAERS Safety Report 12480265 (Version 1)
Quarter: 2016Q2

REPORT INFORMATION
  Report Type: Spontaneous
  Country: US (occurrence: US)
  Receive Date: 20160620
  Receipt Date: 20160620
  Transmission Date: 20160815
  Serious: Yes (Disabling)
  Sender: FDA-Public Use
  Company Number: US-JNJFOC-20160500140

PATIENT
  Sex: Female
  Weight: 71.22 kg

DRUGS (1)
  1. LEVOFLOXACIN. [Suspect]
     Active Substance: LEVOFLOXACIN
     Indication: URINARY TRACT INFECTION
     Dosage: 5 DAYS
     Route: 048
     Dates: start: 201511

REACTIONS (2)
  - Arthralgia [Recovered/Resolved]
  - Pain in extremity [Recovered/Resolved]
